FAERS Safety Report 6858022-7 (Version None)
Quarter: 2010Q3

REPORT INFORMATION
  Report Type: 
  Country: None (occurrence: None)
  Receive Date: 20100715
  Receipt Date: 20100629
  Transmission Date: 20110219
  Serious: Yes (Other)
  Sender: FDA-Public Use
  Company Number: ACO_01347_2010

PATIENT
  Age: 60 Year
  Sex: Female

DRUGS (3)
  1. TIZANIDINE HCL [Suspect]
     Indication: MUSCULOSKELETAL STIFFNESS
     Dosage: DF (ORAL)
     Route: 048
     Dates: start: 20080101
  2. DEPAS [Concomitant]
  3. NORVASC [Concomitant]

REACTIONS (3)
  - ACTIVITIES OF DAILY LIVING IMPAIRED [None]
  - BREAST ATROPHY [None]
  - MUSCULAR WEAKNESS [None]
